FAERS Safety Report 10525342 (Version 2)
Quarter: 2014Q4

REPORT INFORMATION
  Report Type: Spontaneous
  Country: JP (occurrence: JP)
  Receive Date: 20141017
  Receipt Date: 20141017
  Transmission Date: 20150528
  Serious: Yes (Other)
  Sender: FDA-Public Use
  Company Number: JP-PFIZER INC-2014286210

PATIENT
  Sex: Female

DRUGS (3)
  1. CELECOX [Suspect]
     Active Substance: CELECOXIB
     Indication: OFF LABEL USE
  2. CELECOX [Suspect]
     Active Substance: CELECOXIB
     Indication: CHONDROCALCINOSIS PYROPHOSPHATE
     Dosage: 200 MG, 2X/DAY
     Route: 048
  3. CELECOX [Suspect]
     Active Substance: CELECOXIB
     Indication: GOUT

REACTIONS (4)
  - Off label use [Unknown]
  - Blister [Not Recovered/Not Resolved]
  - Aphthous stomatitis [Not Recovered/Not Resolved]
  - Haemorrhage subcutaneous [Not Recovered/Not Resolved]
